FAERS Safety Report 21264848 (Version 5)
Quarter: 2024Q1

REPORT INFORMATION
  Report Type: Other
  Country: NL (occurrence: None)
  Receive Date: 20220829
  Receipt Date: 20240305
  Transmission Date: 20240409
  Serious: No
  Sender: FDA-Public Use
  Company Number: NL-ROCHE-3169823

PATIENT
  Age: 48 Year
  Sex: Female
  Weight: 69 kg

DRUGS (4)
  1. OCRELIZUMAB [Suspect]
     Active Substance: OCRELIZUMAB
     Indication: Relapsing-remitting multiple sclerosis
     Dosage: SUBSEQUENT SAME DOSE: 24/APR/2019 (LOT NUMBER: UNKNOWN)
     Route: 042
     Dates: start: 20190409
  2. OCRELIZUMAB [Suspect]
     Active Substance: OCRELIZUMAB
     Dosage: SUBSEQUENT SAME DOSE: 25/MAY/2020 (LOT NUMBER: UNKNOWN), 07/DEC/2020 (LOT NUMBER: UNKNOWN), 06/JAN/2
     Route: 042
     Dates: start: 20191121
  3. BUDESONIDE [Concomitant]
     Active Substance: BUDESONIDE
     Route: 048
     Dates: start: 20220520
  4. CALCI-CHEW D3 [Concomitant]
     Route: 048
     Dates: start: 20220520

REACTIONS (3)
  - SARS-CoV-2 test positive [Recovered/Resolved]
  - Influenza [Recovered/Resolved]
  - COVID-19 [Recovered/Resolved]

NARRATIVE: CASE EVENT DATE: 20220219
